FAERS Safety Report 14879668 (Version 1)
Quarter: 2018Q2

REPORT INFORMATION
  Report Type: Spontaneous
  Country: BE (occurrence: BE)
  Receive Date: 20180511
  Receipt Date: 20180511
  Transmission Date: 20180711
  Serious: Yes (Other)
  Sender: FDA-Public Use
  Company Number: BE-AUROBINDO-AUR-APL-2018-019819

PATIENT
  Age: 70 Year
  Sex: Female

DRUGS (4)
  1. RIVOTRIL [Suspect]
     Active Substance: CLONAZEPAM
     Indication: PRODUCT USED FOR UNKNOWN INDICATION
     Dosage: UTILIS? AVANT LA SURVENUE DES L?SIONS. ACTUELLEMENT TOUJOURS UTILIS?. ()
     Route: 065
  2. PARACETAMOL [Suspect]
     Active Substance: ACETAMINOPHEN
     Indication: PRODUCT USED FOR UNKNOWN INDICATION
     Dosage: UTILIS? AVANT LA SURVENUE DES L?SIONS. ACTUELLEMENT TOUJOURS UTILIS?. ()
     Route: 065
  3. CALCITONIN [Suspect]
     Active Substance: CALCITONIN
     Indication: PRODUCT USED FOR UNKNOWN INDICATION
     Dosage: UTILIS? AVANT LA SURVENUE DES L?SIONS. ACTUELLEMENT ARR?T?. ()
     Route: 065
  4. OXYCONTIN [Suspect]
     Active Substance: OXYCODONE HYDROCHLORIDE
     Indication: PRODUCT USED FOR UNKNOWN INDICATION
     Dosage: UTILIS? AVANT LA SURVENUE DES L?SIONS. ACTUELLEMENT ARR?T?. ()
     Route: 065

REACTIONS (1)
  - Pemphigus [Unknown]
